FAERS Safety Report 6575558-7 (Version None)
Quarter: 2010Q1

REPORT INFORMATION
  Report Type: 
  Country: None (occurrence: None)
  Receive Date: 20100208
  Receipt Date: 20100208
  Transmission Date: 20100710
  Serious: Yes (Life-Threatening, Hospitalization)
  Sender: FDA-Public Use
  Company Number: None

PATIENT
  Age: 19 Year
  Sex: Female
  Weight: 63.64 kg

DRUGS (2)
  1. HYDROCODONE BITARTRATE AND ACETAMINOPHEN [Suspect]
     Indication: PAIN
     Dosage: 9000 MG ONCE PO
     Route: 048
     Dates: start: 20100130, end: 20100202
  2. IBUPROFEN [Suspect]
     Indication: PAIN
     Dosage: 7200 MG ONCE PO
     Route: 048
     Dates: start: 20100130, end: 20100202

REACTIONS (3)
  - HEPATIC ENZYME INCREASED [None]
  - INTERNATIONAL NORMALISED RATIO ABNORMAL [None]
  - SUICIDE ATTEMPT [None]
